FAERS Safety Report 8557118-1 (Version None)
Quarter: 2012Q3

REPORT INFORMATION
  Report Type: 
  Country: None (occurrence: None)
  Receive Date: 20120801
  Receipt Date: 20120723
  Transmission Date: 20120928
  Serious: Yes (Other)
  Sender: FDA-Public Use
  Company Number: US-009507513-1207USA010710

PATIENT

DRUGS (7)
  1. NORVASC [Suspect]
     Dosage: 10 MG, QD
     Route: 048
  2. XANAX [Concomitant]
     Dosage: 0.5 MG, QD
  3. ZOCOR [Suspect]
     Dosage: 10 MG, QD
     Route: 048
  4. ZOCOR [Suspect]
     Dosage: 15 MG, QD
     Route: 048
  5. MEDROL [Suspect]
     Dosage: UNK, QD
  6. LEVAQUIN [Suspect]
  7. ZOCOR [Suspect]
     Dosage: 5 MG, QD
     Route: 048

REACTIONS (5)
  - VITAMIN D DECREASED [None]
  - VASCULAR CALCIFICATION [None]
  - DIZZINESS [None]
  - TRANSIENT ISCHAEMIC ATTACK [None]
  - JOINT SWELLING [None]
